FAERS Safety Report 14031461 (Version 2)
Quarter: 2018Q4

REPORT INFORMATION
  Report Type: Spontaneous
  Country: FR (occurrence: FR)
  Receive Date: 20171003
  Receipt Date: 20181122
  Transmission Date: 20190204
  Serious: Yes (Hospitalization, Other)
  Sender: FDA-Public Use
  Company Number: FR-MERCK KGAA-2028437

PATIENT
  Age: 72 Year
  Sex: Female

DRUGS (5)
  1. EUTHYROX [Suspect]
     Active Substance: LEVOTHYROXINE SODIUM
     Route: 048
     Dates: start: 201708
  2. EUTHYROX [Suspect]
     Active Substance: LEVOTHYROXINE SODIUM
     Indication: POST PROCEDURAL HYPOTHYROIDISM
     Route: 048
     Dates: start: 201704
  3. EUTHYROX [Suspect]
     Active Substance: LEVOTHYROXINE SODIUM
     Route: 048
     Dates: start: 201708, end: 20170829
  4. EUTHYROX [Suspect]
     Active Substance: LEVOTHYROXINE SODIUM
     Route: 048
     Dates: start: 201705
  5. EUTHYROX [Suspect]
     Active Substance: LEVOTHYROXINE SODIUM
     Route: 048
     Dates: start: 201706

REACTIONS (17)
  - Vomiting [Recovering/Resolving]
  - Constipation [Recovering/Resolving]
  - Blood thyroid stimulating hormone increased [Recovering/Resolving]
  - Volvulus [Recovering/Resolving]
  - Anxiety [Recovering/Resolving]
  - Nausea [Recovering/Resolving]
  - Dizziness [Recovering/Resolving]
  - Decreased appetite [Recovering/Resolving]
  - Headache [Recovering/Resolving]
  - Diarrhoea [Recovering/Resolving]
  - Insomnia [Recovering/Resolving]
  - Abdominal pain [Recovering/Resolving]
  - Weight decreased [Recovering/Resolving]
  - Malaise [Recovering/Resolving]
  - Muscle spasms [Recovering/Resolving]
  - Myalgia [Recovering/Resolving]
  - Night sweats [Recovering/Resolving]

NARRATIVE: CASE EVENT DATE: 2017
